FAERS Safety Report 19906763 (Version 2)
Quarter: 2022Q4

REPORT INFORMATION
  Report Type: Spontaneous
  Country: US (occurrence: US)
  Receive Date: 20210930
  Receipt Date: 20221116
  Transmission Date: 20230113
  Serious: No
  Sender: FDA-Public Use
  Company Number: US-MYLANLABS-2021M1057733

PATIENT
  Sex: Male
  Weight: 88 kg

DRUGS (2)
  1. FENTANYL TRANSDERMAL SYSTEM [Suspect]
     Active Substance: FENTANYL
     Indication: Pain
     Dosage: 75 MICROGRAM, QH
     Route: 062
  2. FENTANYL TRANSDERMAL SYSTEM [Suspect]
     Active Substance: FENTANYL
     Indication: Spinal stenosis
     Dosage: 75 MICROGRAM, QH(FOR 72 HOURS)
     Route: 062

REACTIONS (3)
  - Wrong technique in product usage process [Not Recovered/Not Resolved]
  - Product dispensing error [Unknown]
  - Product adhesion issue [Not Recovered/Not Resolved]
